FAERS Safety Report 8545225-9 (Version None)
Quarter: 2012Q3

REPORT INFORMATION
  Report Type: 
  Country: None (occurrence: None)
  Receive Date: 20120727
  Receipt Date: 20120604
  Transmission Date: 20120928
  Serious: No
  Sender: FDA-Public Use
  Company Number: US-009507513-2012SP022673

PATIENT

DRUGS (3)
  1. CLARITIN [Suspect]
     Indication: HYPERSENSITIVITY
     Dosage: UNK UNK, QD
     Route: 048
     Dates: start: 20120301
  2. CLARITIN [Suspect]
     Indication: NASOPHARYNGITIS
     Dosage: 10 MG, BID
     Route: 048
     Dates: start: 20120319
  3. ASPIRIN [Concomitant]
     Indication: PRODUCT USED FOR UNKNOWN INDICATION
     Dosage: 2 DF, UNKNOWN

REACTIONS (7)
  - SOMNOLENCE [None]
  - ASTHENIA [None]
  - PAIN IN EXTREMITY [None]
  - FEELING ABNORMAL [None]
  - FEELING OF RELAXATION [None]
  - MUSCULOSKELETAL DISORDER [None]
  - PAIN [None]
